FAERS Safety Report 16225707 (Version 1)
Quarter: 2019Q2

REPORT INFORMATION
  Report Type: Spontaneous
  Country: FR (occurrence: FR)
  Receive Date: 20190422
  Receipt Date: 20190422
  Transmission Date: 20190711
  Serious: Yes (Life-Threatening)
  Sender: FDA-Public Use
  Company Number: FR-TEVA-2019-FR-1040952

PATIENT
  Age: 19 Year
  Sex: Male
  Weight: 133 kg

DRUGS (4)
  1. NEO CODION [Suspect]
     Active Substance: CODEINE\GRINDELIA HIRSUTULA WHOLE\SULFOGAIACOL
     Indication: BRONCHITIS
     Dates: start: 20190324, end: 20190324
  2. PARACETAMOL [Concomitant]
     Active Substance: ACETAMINOPHEN
  3. IBUPROFENE [Suspect]
     Active Substance: IBUPROFEN
     Indication: BRONCHITIS
     Route: 048
     Dates: start: 20190324, end: 20190324
  4. AMOXICILLINE ARROW 1 G, COMPRIM? PELLICUL? DISPERSIBLE [Suspect]
     Active Substance: AMOXICILLIN
     Indication: BRONCHITIS
     Dosage: DISPERSIBLE
     Route: 048
     Dates: start: 20190324, end: 20190324

REACTIONS (3)
  - Rash morbilliform [Recovered/Resolved]
  - Angioedema [Recovered/Resolved]
  - Dyspnoea [Recovered/Resolved]

NARRATIVE: CASE EVENT DATE: 20190324
